FAERS Safety Report 8743670 (Version 2)
Quarter: 2012Q4

REPORT INFORMATION
  Report Type: 
  Country: US (occurrence: US)
  Receive Date: 20120824
  Receipt Date: 20121003
  Transmission Date: 20130627
  Serious: Yes (Other)
  Sender: FDA-Public Use
  Company Number: US-009507513-1208USA006767

PATIENT

DRUGS (14)
  1. FOSAMAX [Suspect]
     Indication: OSTEOPOROSIS
     Dosage: 70 mg, qw
     Route: 048
     Dates: start: 20070924
  2. FOSAMAX [Suspect]
     Dosage: 70 mg, qw
     Route: 048
     Dates: start: 20070924
  3. WARFARIN SODIUM [Concomitant]
     Indication: ATRIAL FIBRILLATION
     Dosage: 2-4 mg qd
  4. TYLENOL [Concomitant]
     Indication: OSTEOARTHRITIS
  5. AMLODIPINE BESYLATE [Concomitant]
     Dosage: 5 mg, qd
  6. ATENOLOL [Concomitant]
     Dosage: 100 mg, qd
  7. FUROSEMIDE [Concomitant]
     Dosage: 40 mg, qd
  8. GLIPIZIDE [Concomitant]
     Dosage: 2.5 mg, qd
  9. ISOSORBIDE DINITRATE [Concomitant]
     Dosage: 20 mg, tid
  10. LANOXIN [Concomitant]
     Dosage: 0.125 mg, qd
  11. LISINOPRIL [Concomitant]
     Dosage: 10 mg, qd
  12. SIMVASTATIN [Concomitant]
     Dosage: 10 mg, qd
  13. VITAMIN D (UNSPECIFIED) [Concomitant]
     Dosage: 400 DF, qd
  14. CALCIUM (UNSPECIFIED) [Concomitant]
     Dosage: 1500 mg, qd

REACTIONS (6)
  - Femur fracture [Unknown]
  - Surgery [Unknown]
  - Decubitus ulcer [Unknown]
  - Cerumen impaction [Unknown]
  - Bronchitis [Unknown]
  - Bronchitis [Unknown]
